FAERS Safety Report 25265623 (Version 1)
Quarter: 2025Q2

REPORT INFORMATION
  Report Type: Spontaneous
  Country: FR (occurrence: FR)
  Receive Date: 20250503
  Receipt Date: 20250503
  Transmission Date: 20250716
  Serious: Yes (Other)
  Sender: AUROBINDO
  Company Number: FR-AFSSAPS-AVLY2025000124

PATIENT
  Age: 21 Year
  Sex: Male

DRUGS (1)
  1. PREGABALIN [Suspect]
     Active Substance: PREGABALIN
     Indication: Product used for unknown indication
     Dosage: 600 MILLIGRAM, ONCE A DAY
     Route: 048

REACTIONS (2)
  - Substance abuse [Not Recovered/Not Resolved]
  - Road traffic accident [Recovered/Resolved]
